FAERS Safety Report 9839922 (Version 5)
Quarter: 2014Q1

REPORT INFORMATION
  Report Type: Spontaneous
  Country: IT (occurrence: IT)
  Receive Date: 20140124
  Receipt Date: 20140311
  Transmission Date: 20141002
  Serious: Yes (Hospitalization)
  Sender: FDA-Public Use
  Company Number: IT-RANBAXY-2014RR-77458

PATIENT
  Age: 86 Year
  Sex: Male

DRUGS (6)
  1. PANTOPRAZOLE [Suspect]
     Indication: GASTRITIS PROPHYLAXIS
     Dosage: 40 MG/DAY
     Route: 048
  2. COUMADINE [Interacting]
     Indication: ATRIAL FIBRILLATION
     Dosage: 1.25 MG/DAY
     Route: 048
     Dates: start: 20080101, end: 20131203
  3. COUMADINE [Interacting]
     Indication: ATRIAL FIBRILLATION
     Dosage: UNK
     Route: 065
     Dates: start: 20131205, end: 20131218
  4. ENALAPRIL [Concomitant]
     Indication: PRODUCT USED FOR UNKNOWN INDICATION
     Dosage: 10 MG, UNK
     Route: 048
  5. FUROSEMIDE [Concomitant]
     Indication: PRODUCT USED FOR UNKNOWN INDICATION
     Dosage: 25 MG, UNK
     Route: 048
  6. BISOPROLOLO [Concomitant]
     Indication: PRODUCT USED FOR UNKNOWN INDICATION
     Dosage: 1.25 MG, UNK
     Route: 048

REACTIONS (2)
  - Hypocoagulable state [Recovered/Resolved]
  - Drug interaction [Recovered/Resolved]
